FAERS Safety Report 9705299 (Version 2)
Quarter: 2014Q1

REPORT INFORMATION
  Report Type: Report from Study
  Country: US (occurrence: US)
  Receive Date: 20131122
  Receipt Date: 20140116
  Transmission Date: 20141002
  Serious: Yes (Hospitalization)
  Sender: FDA-Public Use
  Company Number: US-OTSUKA-US-2013-11903

PATIENT
  Age: 66 Year
  Sex: Female

DRUGS (4)
  1. BUSULFEX [Suspect]
     Indication: HAEMATOLOGICAL MALIGNANCY
     Dosage: 214/161 QD
     Route: 042
     Dates: start: 20060622, end: 20060625
  2. FLUDARABINE [Suspect]
     Indication: HAEMATOLOGICAL MALIGNANCY
     Dosage: 42/20
     Route: 042
     Dates: start: 20060621, end: 20060625
  3. ALEMTUZUMAB [Suspect]
     Indication: HAEMATOLOGICAL MALIGNANCY
  4. CLONAZEPAM [Suspect]
     Indication: CONVULSION

REACTIONS (1)
  - Cardiac failure congestive [None]
